FAERS Safety Report 10357325 (Version 1)
Quarter: 2014Q3

REPORT INFORMATION
  Report Type: Spontaneous
  Country: US (occurrence: None)
  Receive Date: 20140730
  Receipt Date: 20140730
  Transmission Date: 20150326
  Serious: Yes (Other)
  Sender: FDA-Public Use
  Company Number: None

PATIENT
  Age: 69 Year
  Sex: Female
  Weight: 67.59 kg

DRUGS (17)
  1. RANITIDINE [Concomitant]
     Active Substance: RANITIDINE\RANITIDINE HYDROCHLORIDE
  2. PERCOCET [Concomitant]
     Active Substance: ACETAMINOPHEN\OXYCODONE HYDROCHLORIDE
  3. ZOLPIDEM [Concomitant]
     Active Substance: ZOLPIDEM\ZOLPIDEM TARTRATE
  4. ROBAXIN [Concomitant]
     Active Substance: METHOCARBAMOL
  5. TRAMADOL [Concomitant]
     Active Substance: TRAMADOL
  6. XARELTO [Suspect]
     Active Substance: RIVAROXABAN
     Indication: PULMONARY EMBOLISM
     Dates: start: 20140519, end: 20140604
  7. VITAMIN FOR WOMEN OVER 50 [Concomitant]
  8. HYDROXYZINE HCL [Concomitant]
     Active Substance: HYDROXYZINE HYDROCHLORIDE
  9. VALIUM [Concomitant]
     Active Substance: DIAZEPAM
  10. PERCOCET FOR MIGRAINE HEADACHE [Concomitant]
  11. NEXIUM [Concomitant]
     Active Substance: ESOMEPRAZOLE MAGNESIUM
  12. VALTREX [Concomitant]
     Active Substance: VALACYCLOVIR HYDROCHLORIDE
  13. LEVOTHYROXINE [Concomitant]
     Active Substance: LEVOTHYROXINE
  14. COUMADIN [Concomitant]
     Active Substance: WARFARIN SODIUM
  15. RESTASIS EYE DROPS (DRY EYES) [Concomitant]
  16. CALCIUM CARBONATE 50MG/VIT D [Concomitant]
  17. TOPIRAMATE. [Concomitant]
     Active Substance: TOPIRAMATE

REACTIONS (13)
  - Arthritis [None]
  - Balance disorder [None]
  - Headache [None]
  - Mood altered [None]
  - Swelling [None]
  - Dizziness [None]
  - Pruritus [None]
  - Decreased appetite [None]
  - Nervousness [None]
  - Nausea [None]
  - Vision blurred [None]
  - Diarrhoea [None]
  - Suicidal ideation [None]

NARRATIVE: CASE EVENT DATE: 20140522
